FAERS Safety Report 10045033 (Version 3)
Quarter: 2014Q2

REPORT INFORMATION
  Report Type: Spontaneous
  Country: US (occurrence: US)
  Receive Date: 20140328
  Receipt Date: 20140513
  Transmission Date: 20141212
  Serious: Yes (Other)
  Sender: FDA-Public Use
  Company Number: US-ALLERGAN-1405926US

PATIENT
  Age: 56 Year
  Sex: Female
  Weight: 116.74 kg

DRUGS (22)
  1. BOTOX [Suspect]
     Indication: MIGRAINE
     Dosage: 155 UNITS, SINGLE
     Route: 030
     Dates: start: 20140214, end: 20140214
  2. XANAX [Concomitant]
     Dosage: 1 MG, PRN
     Route: 048
  3. LEVALBUTEROL [Concomitant]
     Dosage: 2 PUFFS, Q8HR VIA INHALER
     Route: 055
  4. LEVALBUTEROL [Concomitant]
     Dosage: 1 VIAL Q8HRS, PRN AS NEBULIZER
     Route: 055
  5. HYDROCODONE ACETAMINOPHEN [Concomitant]
     Dosage: 7.5/325 MG, PRN
     Route: 048
  6. OXYCODONE ACETAMINOPHEN [Concomitant]
     Dosage: 5/325 MG, PRN
     Route: 048
  7. PRILOSEC                           /00661201/ [Concomitant]
     Dosage: UNK UNK, QD
     Route: 048
  8. NTG [Concomitant]
     Dosage: UNK UNK, PRN
     Route: 060
  9. PROMETHAZINE [Concomitant]
     Indication: NAUSEA
     Dosage: 25 MG, PRN
     Route: 048
  10. PROMETHAZINE [Concomitant]
     Indication: VOMITING
  11. SYNTHROID [Concomitant]
     Dosage: 137 ?G, QAM
     Route: 048
  12. PROBIOTIC [Concomitant]
     Dosage: UNK
     Route: 048
  13. MODAFINIL [Concomitant]
     Dosage: 200 MG, QAM
     Route: 048
  14. ALBUTEROL [Concomitant]
     Dosage: 1 VIAL Q4HRS, PRN
     Route: 055
  15. CITRUCEL [Concomitant]
     Dosage: 1000 MG, BID
     Route: 048
  16. TOPAMAX [Concomitant]
     Indication: MIGRAINE
     Dosage: UNK UNK, PRN
     Route: 048
  17. DULCOLAX [Concomitant]
     Dosage: 5 MG, PRN
     Route: 048
  18. PSYLLIUM [Concomitant]
     Dosage: 2 ENVELOPES, QD
     Route: 048
  19. FLUOZIN [Concomitant]
     Indication: MIGRAINE
     Dosage: 40 MG, QD
     Route: 048
  20. PROMETHAZINE [Concomitant]
     Dosage: 1 TSP Q6HRS, Q6HR
     Route: 048
  21. MONTELUKAST [Concomitant]
     Dosage: 10 MG, QD
     Route: 048
  22. FLUTICASONE [Concomitant]
     Dosage: UNK UNK, PRN
     Route: 045

REACTIONS (20)
  - Blindness unilateral [Not Recovered/Not Resolved]
  - Depression [Recovering/Resolving]
  - Orthopnoea [Not Recovered/Not Resolved]
  - Conjunctivitis allergic [Not Recovered/Not Resolved]
  - Panic attack [Unknown]
  - Ocular icterus [Not Recovered/Not Resolved]
  - Eye discharge [Not Recovered/Not Resolved]
  - Eye swelling [Not Recovered/Not Resolved]
  - Eye pain [Not Recovered/Not Resolved]
  - Rash erythematous [Not Recovered/Not Resolved]
  - Thirst [Not Recovered/Not Resolved]
  - Pain [Not Recovered/Not Resolved]
  - Skin hyperpigmentation [Not Recovered/Not Resolved]
  - Conjunctivitis [Not Recovered/Not Resolved]
  - Eyelid oedema [Not Recovered/Not Resolved]
  - Vision blurred [Not Recovered/Not Resolved]
  - Abdominal pain [Not Recovered/Not Resolved]
  - Diarrhoea [Not Recovered/Not Resolved]
  - Decreased appetite [Not Recovered/Not Resolved]
  - Eyelids pruritus [Not Recovered/Not Resolved]
